FAERS Safety Report 25334592 (Version 1)
Quarter: 2025Q2

REPORT INFORMATION
  Report Type: Spontaneous
  Country: US (occurrence: US)
  Receive Date: 20250520
  Receipt Date: 20250520
  Transmission Date: 20250716
  Serious: Yes (Hospitalization)
  Sender: ALEXION PHARMACEUTICALS
  Company Number: US-AstraZeneca-CH-00872193A

PATIENT
  Age: 85 Year

DRUGS (1)
  1. WAINUA [Suspect]
     Active Substance: EPLONTERSEN
     Route: 065

REACTIONS (1)
  - Fall [Unknown]
